FAERS Safety Report 16190940 (Version 3)
Quarter: 2019Q2

REPORT INFORMATION
  Report Type: Report from Study
  Country: JP (occurrence: JP)
  Receive Date: 20190412
  Receipt Date: 20190503
  Transmission Date: 20190711
  Serious: Yes (Hospitalization)
  Sender: FDA-Public Use
  Company Number: JP-TAKEDA-2019TJP008120

PATIENT
  Age: 75 Year
  Sex: Female
  Weight: 42.2 kg

DRUGS (15)
  1. LENALIDOMIDE [Suspect]
     Active Substance: LENALIDOMIDE
     Indication: PLASMA CELL MYELOMA
     Dosage: 25 MILLIGRAM, QD
     Route: 048
     Dates: start: 20161206
  2. TAPIZOL [Concomitant]
     Active Substance: LANSOPRAZOLE
     Indication: GASTRITIS PROPHYLAXIS
     Dosage: 15 MILLIGRAM, QD
     Route: 048
     Dates: start: 20161206
  3. DEXAMETHASONE. [Suspect]
     Active Substance: DEXAMETHASONE
     Indication: PLASMA CELL MYELOMA
     Dosage: 40 MILLIGRAM, 1/WEEK
     Route: 048
     Dates: start: 20161206
  4. IXAZOMIB [Suspect]
     Active Substance: IXAZOMIB
     Indication: PLASMA CELL MYELOMA
     Dosage: 4 MILLIGRAM, 1/WEEK
     Route: 048
     Dates: start: 20161206, end: 20190403
  5. LENALIDOMIDE [Suspect]
     Active Substance: LENALIDOMIDE
     Dosage: 15 MILLIGRAM, QD
     Route: 048
     Dates: start: 20180807
  6. BAYASPIRIN [Concomitant]
     Active Substance: ASPIRIN
     Indication: THROMBOSIS PROPHYLAXIS
     Dosage: 100 MILLIGRAM, QD
     Route: 048
     Dates: start: 20161206
  7. NERIPROCT [Concomitant]
     Active Substance: DIFLUCORTOLONE VALERATE\LIDOCAINE
     Indication: HAEMORRHOIDS
     Dosage: UNK
     Route: 054
     Dates: start: 20161220
  8. GLIMICRON [Concomitant]
     Active Substance: GLICLAZIDE
     Indication: HYPERGLYCAEMIA
     Dosage: 40 MILLIGRAM, BID
     Route: 048
     Dates: start: 20181213
  9. LOXOPROFEN SODIUM [Concomitant]
     Active Substance: LOXOPROFEN SODIUM
     Indication: BACK PAIN
     Dosage: 60 MILLIGRAM
     Route: 048
     Dates: start: 20180401
  10. LENALIDOMIDE [Suspect]
     Active Substance: LENALIDOMIDE
     Dosage: 10 MILLIGRAM, QD
     Route: 048
     Dates: start: 20181212, end: 20190408
  11. DEXAMETHASONE. [Suspect]
     Active Substance: DEXAMETHASONE
     Dosage: 20 MILLIGRAM, 1/WEEK
     Route: 048
     Dates: start: 20170425, end: 20190403
  12. HIRUDOID [Concomitant]
     Active Substance: GLYCOSAMINOGLYCANS
     Indication: DRY SKIN
     Dosage: UNK
     Route: 061
     Dates: start: 20161111
  13. MAGNESIUM OXIDE. [Concomitant]
     Active Substance: MAGNESIUM OXIDE
     Indication: CONSTIPATION
     Dosage: UNK
     Route: 048
     Dates: start: 20161220
  14. SENNARIDE [Concomitant]
     Active Substance: SENNOSIDES A AND B
     Indication: CONSTIPATION
     Dosage: UNK
     Route: 048
     Dates: start: 20161220
  15. ADOFEED [Concomitant]
     Active Substance: FLURBIPROFEN
     Indication: BACK PAIN
     Dosage: 40 MILLIGRAM
     Route: 062
     Dates: start: 20180709

REACTIONS (1)
  - Pneumonia [Recovered/Resolved]

NARRATIVE: CASE EVENT DATE: 20190408
